FAERS Safety Report 14076583 (Version 2)
Quarter: 2017Q4

REPORT INFORMATION
  Report Type: Report from Study
  Country: US (occurrence: US)
  Receive Date: 20171011
  Receipt Date: 20171128
  Transmission Date: 20180321
  Serious: Yes (Life-Threatening)
  Sender: FDA-Public Use
  Company Number: US-EISAI MEDICAL RESEARCH-EC-2017-032020

PATIENT
  Age: 73 Year
  Sex: Female
  Weight: 65.1 kg

DRUGS (12)
  1. CALTRATE [Concomitant]
     Active Substance: CALCIUM CARBONATE
  2. CLOBEX [Concomitant]
     Active Substance: CLOBETASOL PROPIONATE
  3. PRILOSEC [Concomitant]
     Active Substance: OMEPRAZOLE MAGNESIUM
  4. PEMBROLIZUMAB. [Suspect]
     Active Substance: PEMBROLIZUMAB
     Indication: BREAST CANCER METASTATIC
     Route: 041
     Dates: start: 20171002
  5. ZOMETA [Concomitant]
     Active Substance: ZOLEDRONIC ACID
  6. MULTIVITAMIN [Concomitant]
     Active Substance: VITAMINS
  7. ERIBULIN [Suspect]
     Active Substance: ERIBULIN
     Dosage: CYCLE 2, DAY 1
     Route: 041
     Dates: start: 20171023, end: 20171023
  8. TEMOVATE [Concomitant]
     Active Substance: CLOBETASOL PROPIONATE
  9. ERIBULIN [Suspect]
     Active Substance: ERIBULIN
     Dosage: CYCLE 3, DAY 1
     Route: 041
     Dates: start: 20171113
  10. REGLAN [Concomitant]
     Active Substance: METOCLOPRAMIDE HYDROCHLORIDE
  11. ERIBULIN [Suspect]
     Active Substance: ERIBULIN
     Indication: BREAST CANCER METASTATIC
     Dosage: CYCLE 1, DAY 1
     Route: 041
     Dates: start: 20171002, end: 20171002
  12. ATIVAN [Concomitant]
     Active Substance: LORAZEPAM

REACTIONS (1)
  - Neutropenia [Recovering/Resolving]

NARRATIVE: CASE EVENT DATE: 20171010
